FAERS Safety Report 5092058-4 (Version None)
Quarter: 2006Q3

REPORT INFORMATION
  Report Type: 
  Country: None (occurrence: None)
  Receive Date: 20060825
  Receipt Date: 20060816
  Transmission Date: 20061208
  Serious: Yes (Hospitalization)
  Sender: FDA-Public Use
  Company Number: NL-2006-023381

PATIENT
  Age: 80 Year
  Sex: Female

DRUGS (2)
  1. MABCAMPATH  3ML [Suspect]
     Indication: CHRONIC LYMPHOCYTIC LEUKAEMIA
     Dosage: 1ST DOSE DOSE AFTER ESCALATION WEEK, SUBCUTANEOUS
     Route: 058
     Dates: start: 20060101, end: 20060807
  2. HYDROCORTISON 10 MG JENAPHARM (HYDROCORTISONE) TABLET [Suspect]
     Indication: PROPHYLAXIS
     Dates: end: 20060809

REACTIONS (1)
  - HYPERKINESIA [None]
